FAERS Safety Report 4378177-6 (Version None)
Quarter: 2004Q2

REPORT INFORMATION
  Report Type: 
  Country: None (occurrence: None)
  Receive Date: 20040614
  Receipt Date: 20040614
  Transmission Date: 20050107
  Serious: Yes (Hospitalization)
  Sender: FDA-Public Use
  Company Number: None

PATIENT
  Sex: Male
  Weight: 73.9363 kg

DRUGS (4)
  1. GEMZAR [Suspect]
     Indication: PANCREATIC CARCINOMA
     Dosage: 1800 MG IV
     Route: 042
     Dates: start: 20040419, end: 20040524
  2. COUMADIN [Concomitant]
  3. FLAGYL [Concomitant]
  4. PEPCID [Concomitant]

REACTIONS (3)
  - HAEMATURIA [None]
  - HYPERCOAGULATION [None]
  - OEDEMA PERIPHERAL [None]
